FAERS Safety Report 5705859-3 (Version None)
Quarter: 2008Q2

REPORT INFORMATION
  Report Type: 
  Country: None (occurrence: None)
  Receive Date: 20080415
  Receipt Date: 20080409
  Transmission Date: 20081010
  Serious: No
  Sender: FDA-Public Use
  Company Number: US-MERCK-0804USA01020

PATIENT
  Age: 8 Year
  Sex: Male

DRUGS (1)
  1. SINGULAIR [Suspect]
     Route: 048

REACTIONS (2)
  - MOOD ALTERED [None]
  - SOCIAL AVOIDANT BEHAVIOUR [None]
